FAERS Safety Report 5638640-4 (Version None)
Quarter: 2008Q2

REPORT INFORMATION
  Report Type: 
  Country: None (occurrence: None)
  Receive Date: 20080226
  Receipt Date: 20080211
  Transmission Date: 20081010
  Serious: Yes (Hospitalization)
  Sender: FDA-Public Use
  Company Number: US-GENENTECH-250973

PATIENT
  Sex: Female
  Weight: 69.841 kg

DRUGS (11)
  1. BEVACIZUMAB [Suspect]
     Indication: BREAST CANCER
     Dosage: 5 MG/KG, UNK
     Route: 042
     Dates: start: 20071015
  2. TRASTUZUMAB [Suspect]
     Indication: BREAST CANCER
     Dosage: 2 MG/KG, UNK
     Route: 042
     Dates: start: 20071015
  3. TRASTUZUMAB [Suspect]
     Dosage: 4 MG/KG, UNK
     Route: 042
  4. CARBOPLATIN [Suspect]
     Indication: BREAST CANCER
     Dosage: 6 AUC, UNK
     Route: 042
     Dates: start: 20071015
  5. ABRAXANE [Suspect]
     Indication: BREAST CANCER
     Dosage: 100 MG/M2, UNK
     Route: 042
     Dates: start: 20071015
  6. PROTONIX [Concomitant]
     Indication: DRUG USE FOR UNKNOWN INDICATION
  7. WELLBUTRIN [Concomitant]
     Indication: DRUG USE FOR UNKNOWN INDICATION
  8. ASPIRIN [Concomitant]
     Indication: DRUG USE FOR UNKNOWN INDICATION
  9. ZOSYN [Concomitant]
     Indication: DRUG USE FOR UNKNOWN INDICATION
     Dosage: 4.5 MG, QD
     Dates: start: 20071031, end: 20071106
  10. VANCOMYCIN [Concomitant]
     Indication: DRUG USE FOR UNKNOWN INDICATION
     Dosage: 1 MG, QD
     Dates: start: 20071031, end: 20071107
  11. AUGMENTIN '250' [Concomitant]
     Indication: DRUG USE FOR UNKNOWN INDICATION
     Dosage: 575 ML, Q12H
     Dates: start: 20071106, end: 20071112

REACTIONS (3)
  - CHEST PAIN [None]
  - PERINEAL ABSCESS [None]
  - SEPSIS SYNDROME [None]
